FAERS Safety Report 24212779 (Version 2)
Quarter: 2024Q3

REPORT INFORMATION
  Report Type: Report from Study
  Country: US (occurrence: US)
  Receive Date: 20240815
  Receipt Date: 20240917
  Transmission Date: 20241017
  Serious: Yes (Hospitalization, Other)
  Sender: ROCHE
  Company Number: US-ROCHE-10000054188

PATIENT
  Age: 55 Year
  Sex: Female
  Weight: 70 kg

DRUGS (1)
  1. OCREVUS [Suspect]
     Active Substance: OCRELIZUMAB
     Indication: Relapsing-remitting multiple sclerosis
     Route: 042
     Dates: start: 20230623

REACTIONS (18)
  - Infection [Recovered/Resolved]
  - Nephrolithiasis [Unknown]
  - Urinary tract infection [Unknown]
  - Fatigue [Unknown]
  - Pyrexia [Unknown]
  - Pyelonephritis [Unknown]
  - Neurogenic bladder [Unknown]
  - Type 2 diabetes mellitus [Unknown]
  - Thyroid disorder [Unknown]
  - Migraine [Unknown]
  - Flank pain [Unknown]
  - Hydronephrosis [Unknown]
  - Constipation [Unknown]
  - Hypokalaemia [Unknown]
  - Myelitis transverse [Unknown]
  - Insomnia [Unknown]
  - Anxiety [Unknown]
  - Obesity [Unknown]

NARRATIVE: CASE EVENT DATE: 20240708
